FAERS Safety Report 7400649-8 (Version None)
Quarter: 2011Q2

REPORT INFORMATION
  Report Type: 
  Country: None (occurrence: None)
  Receive Date: 20110407
  Receipt Date: 20110325
  Transmission Date: 20111010
  Serious: Yes (Death, Other)
  Sender: FDA-Public Use
  Company Number: PHHY2011BR28157

PATIENT
  Sex: Female
  Weight: 80 kg

DRUGS (2)
  1. PANTOPRAZOLE [Suspect]
     Indication: ABDOMINAL DISCOMFORT
     Route: 048
  2. ATENOLOL [Suspect]
     Indication: HYPERTENSION
     Dosage: 25 MG, BID
     Route: 048

REACTIONS (2)
  - LUNG DISORDER [None]
  - DEMENTIA ALZHEIMER'S TYPE [None]
